FAERS Safety Report 19677505 (Version 1)
Quarter: 2021Q3

REPORT INFORMATION
  Report Type: Spontaneous
  Country: US (occurrence: US)
  Receive Date: 20210809
  Receipt Date: 20210809
  Transmission Date: 20211014
  Serious: No
  Sender: FDA-Public Use
  Company Number: US-PFIZER INC-2021522596

PATIENT

DRUGS (2)
  1. VICODIN [Suspect]
     Active Substance: ACETAMINOPHEN\HYDROCODONE BITARTRATE
     Dosage: UNK
  2. VIAGRA [Suspect]
     Active Substance: SILDENAFIL CITRATE
     Dosage: UNK

REACTIONS (7)
  - Feeling abnormal [Unknown]
  - Penis disorder [Unknown]
  - Musculoskeletal stiffness [Unknown]
  - Dysuria [Unknown]
  - Abdominal pain [Unknown]
  - Erection increased [Unknown]
  - Circumstance or information capable of leading to medication error [Unknown]
